FAERS Safety Report 7005363-9 (Version None)
Quarter: 2010Q3

REPORT INFORMATION
  Report Type: 
  Country: None (occurrence: None)
  Receive Date: 20100921
  Receipt Date: 20100913
  Transmission Date: 20110219
  Serious: Yes (Hospitalization)
  Sender: FDA-Public Use
  Company Number: DE-BAYER-201039808GPV

PATIENT
  Age: 40 Year
  Sex: Female
  Weight: 63 kg

DRUGS (1)
  1. YAZ [Suspect]
     Indication: CONTRACEPTION
     Route: 048
     Dates: start: 20100601

REACTIONS (4)
  - CHEST PAIN [None]
  - DYSPNOEA EXERTIONAL [None]
  - PNEUMONIA [None]
  - PULMONARY EMBOLISM [None]
